FAERS Safety Report 8226126-2 (Version None)
Quarter: 2012Q1

REPORT INFORMATION
  Report Type: 
  Country: None (occurrence: None)
  Receive Date: 20120319
  Receipt Date: 20120309
  Transmission Date: 20120608
  Serious: Yes (Other)
  Sender: FDA-Public Use
  Company Number: 2012AP000702

PATIENT
  Age: 73 Year
  Sex: Female

DRUGS (3)
  1. PAROXETINE HCL [Suspect]
     Indication: DEPRESSION
  2. ATORVASTATIN [Concomitant]
  3. ALPRAZOLAM [Concomitant]

REACTIONS (2)
  - PHOTOSENSITIVITY REACTION [None]
  - GRANULOMA ANNULARE [None]
